FAERS Safety Report 7638611-2 (Version None)
Quarter: 2011Q3

REPORT INFORMATION
  Report Type: 
  Country: None (occurrence: None)
  Receive Date: 20110727
  Receipt Date: 20110720
  Transmission Date: 20111222
  Serious: Yes (Other)
  Sender: FDA-Public Use
  Company Number: ES-KINGPHARMUSA00001-K201100780

PATIENT
  Age: 12 Year
  Sex: Female

DRUGS (1)
  1. TAPAZOLE [Suspect]
     Indication: BASEDOW'S DISEASE
     Dosage: 0.7 MG/KG, QD
     Route: 048

REACTIONS (3)
  - POLYARTHRITIS [None]
  - ARTHRALGIA [None]
  - JOINT EFFUSION [None]
